FAERS Safety Report 23638570 (Version 1)
Quarter: 2024Q1

REPORT INFORMATION
  Report Type: Spontaneous
  Country: US (occurrence: US)
  Receive Date: 20240315
  Receipt Date: 20240315
  Transmission Date: 20240410
  Serious: No
  Sender: FDA-Public Use
  Company Number: US-BAUSCH-BL-2024-004156

PATIENT
  Age: 69 Year
  Sex: Female

DRUGS (1)
  1. FAMOTIDINE [Suspect]
     Active Substance: FAMOTIDINE
     Indication: Hyperchlorhydria
     Route: 065

REACTIONS (3)
  - Abdominal pain upper [Unknown]
  - Hyperchlorhydria [Unknown]
  - Condition aggravated [Unknown]
